FAERS Safety Report 12216990 (Version 6)
Quarter: 2016Q3

REPORT INFORMATION
  Report Type: Report from Study
  Country: US (occurrence: US)
  Receive Date: 20160329
  Receipt Date: 20160712
  Transmission Date: 20161109
  Serious: Yes (Other)
  Sender: FDA-Public Use
  Company Number: PHEH2016US007452

PATIENT
  Age: 82 Year
  Sex: Female
  Weight: 65.86 kg

DRUGS (9)
  1. AFINITOR [Suspect]
     Active Substance: EVEROLIMUS
     Indication: INVASIVE DUCTAL BREAST CARCINOMA
  2. MOTRIN [Concomitant]
     Active Substance: IBUPROFEN
     Indication: PRODUCT USED FOR UNKNOWN INDICATION
     Dosage: UNK
     Route: 065
  3. GABAPENTIN. [Concomitant]
     Active Substance: GABAPENTIN
     Indication: PRODUCT USED FOR UNKNOWN INDICATION
     Dosage: UNK
     Route: 065
  4. TAXOTERE [Concomitant]
     Active Substance: DOCETAXEL
     Indication: PRODUCT USED FOR UNKNOWN INDICATION
     Dosage: 75 MG/M2, TIW
     Route: 065
     Dates: start: 20160504, end: 20160526
  5. TYLENOL [Concomitant]
     Active Substance: ACETAMINOPHEN
     Indication: PRODUCT USED FOR UNKNOWN INDICATION
     Dosage: UNK
     Route: 065
  6. AFINITOR [Suspect]
     Active Substance: EVEROLIMUS
     Indication: BREAST CANCER FEMALE
     Dosage: 10 MG, QD
     Route: 048
     Dates: start: 20160316, end: 20160420
  7. FEMARA [Suspect]
     Active Substance: LETROZOLE
     Indication: BREAST CANCER FEMALE
     Route: 065
     Dates: start: 20150801
  8. FEMARA [Suspect]
     Active Substance: LETROZOLE
     Indication: INVASIVE DUCTAL BREAST CARCINOMA
  9. PALBOCICLIB [Suspect]
     Active Substance: PALBOCICLIB
     Indication: PRODUCT USED FOR UNKNOWN INDICATION
     Dosage: 75 MG, 21 DAYS ON 7 DAYS OFF
     Route: 065
     Dates: start: 20150915

REACTIONS (31)
  - Confusional state [Unknown]
  - Skin discolouration [Recovered/Resolved]
  - Blood pressure increased [Unknown]
  - Oedema [Unknown]
  - Neutropenia [Unknown]
  - Anaemia [Unknown]
  - Pain in extremity [Unknown]
  - Fatigue [Unknown]
  - Oesophageal candidiasis [Unknown]
  - Breast cancer metastatic [Unknown]
  - Pain [Recovered/Resolved]
  - Anxiety [Unknown]
  - Diarrhoea [Unknown]
  - Dry mouth [Unknown]
  - Faeces discoloured [Unknown]
  - Decreased appetite [Unknown]
  - Gastrointestinal haemorrhage [Unknown]
  - Malignant neoplasm progression [Unknown]
  - Peripheral swelling [Unknown]
  - Feeling abnormal [Unknown]
  - Erythema [Unknown]
  - Inflammatory carcinoma of the breast [Unknown]
  - Upper gastrointestinal haemorrhage [Unknown]
  - Breast swelling [Recovered/Resolved]
  - Duodenal ulcer [Unknown]
  - Tumour pain [Unknown]
  - Hypermetabolism [Unknown]
  - Body temperature decreased [Unknown]
  - Asthenia [Unknown]
  - Lymphoedema [Unknown]
  - Oedema peripheral [Unknown]

NARRATIVE: CASE EVENT DATE: 201603
